FAERS Safety Report 11713365 (Version 2)
Quarter: 2015Q4

REPORT INFORMATION
  Report Type: Spontaneous
  Country: GB (occurrence: GB)
  Receive Date: 20151109
  Receipt Date: 20151120
  Transmission Date: 20160304
  Serious: Yes (Life-Threatening, Hospitalization)
  Sender: FDA-Public Use
  Company Number: GB-ACCORD-035187

PATIENT
  Age: 7 Year
  Sex: Female
  Weight: 24.2 kg

DRUGS (6)
  1. TRUSOPT [Concomitant]
     Active Substance: DORZOLAMIDE HYDROCHLORIDE
  2. METHOTREXATE [Suspect]
     Active Substance: METHOTREXATE
     Indication: UVEITIS
     Route: 058
     Dates: start: 20140627, end: 20150801
  3. AMOXICILLIN. [Concomitant]
     Active Substance: AMOXICILLIN
  4. HUMIRA [Suspect]
     Active Substance: ADALIMUMAB
     Indication: UVEITIS
     Route: 058
     Dates: start: 20150424, end: 20151014
  5. MAXIDEX [Concomitant]
     Active Substance: DEXAMETHASONE
  6. MYCOPHENOLIC ACID. [Suspect]
     Active Substance: MYCOPHENOLIC ACID
     Indication: UVEITIS
     Route: 048
     Dates: start: 20150424, end: 20151014

REACTIONS (3)
  - Acute lymphocytic leukaemia [Not Recovered/Not Resolved]
  - Off label use [Unknown]
  - Alanine aminotransferase increased [Recovered/Resolved]

NARRATIVE: CASE EVENT DATE: 201504
